FAERS Safety Report 5101713-9 (Version None)
Quarter: 2006Q3

REPORT INFORMATION
  Report Type: 
  Country: None (occurrence: None)
  Receive Date: 20060911
  Receipt Date: 20050307
  Transmission Date: 20061208
  Serious: Yes (Disabling, Other)
  Sender: FDA-Public Use
  Company Number: DE-PURDUE-DEU_2005_0001311

PATIENT
  Age: 45 Year
  Sex: Male
  Weight: 94 kg

DRUGS (3)
  1. MST 100 MG MUNDIPHARMA [Suspect]
     Indication: PAIN
     Dosage: 100 MG, QID
     Route: 048
  2. SEVREDOL 20 MG [Suspect]
     Indication: PAIN
     Dosage: UNK, PRN
     Route: 048
  3. VIANI [Concomitant]

REACTIONS (6)
  - BRONCHITIS [None]
  - BRONCHOSPASM [None]
  - DYSPNOEA [None]
  - EMPHYSEMA [None]
  - PNEUMONIA [None]
  - WEIGHT INCREASED [None]
